FAERS Safety Report 21338875 (Version 1)
Quarter: 2022Q3

REPORT INFORMATION
  Report Type: Spontaneous
  Country: US (occurrence: US)
  Receive Date: 20220915
  Receipt Date: 20220915
  Transmission Date: 20221027
  Serious: No
  Sender: FDA-Public Use
  Company Number: US-VIVUS, Inc.-2022V1000102

PATIENT
  Sex: Female

DRUGS (3)
  1. QSYMIA [Suspect]
     Active Substance: PHENTERMINE HYDROCHLORIDE\TOPIRAMATE
     Indication: Weight decreased
     Route: 048
  2. FENTANYL [Concomitant]
     Active Substance: FENTANYL
     Indication: Product used for unknown indication
     Dosage: DECREASING TO STOP
     Route: 065
  3. DULOXETINE [Concomitant]
     Active Substance: DULOXETINE
     Indication: Product used for unknown indication
     Route: 065

REACTIONS (4)
  - Insomnia [Not Recovered/Not Resolved]
  - Migraine [Not Recovered/Not Resolved]
  - Myopathy [Not Recovered/Not Resolved]
  - Fibromyalgia [Not Recovered/Not Resolved]
